FAERS Safety Report 4404710-1 (Version None)
Quarter: 2004Q3

REPORT INFORMATION
  Report Type: 
  Country: None (occurrence: None)
  Receive Date: 20040715
  Receipt Date: 20040708
  Transmission Date: 20050211
  Serious: Yes (Other)
  Sender: FDA-Public Use
  Company Number: US-JNJFOC-20040400652

PATIENT
  Age: 27 Year
  Sex: Female
  Weight: 65.7716 kg

DRUGS (5)
  1. ORTHO EVRA [Suspect]
     Indication: CONTRACEPTION
     Dosage: 1 DOSE (S), 3 IN 4 WEEK, TRANSDERMAL
     Route: 062
     Dates: start: 20031201, end: 20040401
  2. RHINOCORT [Concomitant]
  3. ADVAIR (UNSPECIFIED) SERETIDE MITE [Concomitant]
  4. ALBUTEROL [Concomitant]
  5. ZYRTEC D (CETIRIZINE HYDROCHLORIDE) [Concomitant]

REACTIONS (5)
  - ANXIETY [None]
  - ASTHMA [None]
  - CONDITION AGGRAVATED [None]
  - NAUSEA [None]
  - PANIC ATTACK [None]
